FAERS Safety Report 11310967 (Version 1)
Quarter: 2015Q3

REPORT INFORMATION
  Report Type: Spontaneous
  Country: US (occurrence: US)
  Receive Date: 20150727
  Receipt Date: 20150727
  Transmission Date: 20151125
  Serious: No
  Sender: FDA-Public Use
  Company Number: US-AMGEN-USASP2015073028

PATIENT
  Age: 55 Year
  Sex: Female

DRUGS (3)
  1. TRAMADOL. [Concomitant]
     Active Substance: TRAMADOL
     Dosage: UNK
  2. PHENERGAN [Concomitant]
     Active Substance: PROMETHAZINE HYDROCHLORIDE
     Dosage: UNK
  3. ENBREL [Suspect]
     Active Substance: ETANERCEPT
     Indication: PSORIASIS
     Dosage: UNK
     Route: 065

REACTIONS (12)
  - Medical device site abscess [Unknown]
  - Nervous system disorder [Unknown]
  - Arthralgia [Unknown]
  - Psoriasis [Unknown]
  - Artificial crown procedure [Unknown]
  - Osteoarthritis [Unknown]
  - Arthropathy [Unknown]
  - Local swelling [Unknown]
  - Upper respiratory tract infection [Unknown]
  - Oral surgery [Unknown]
  - Oral infection [Unknown]
  - Feeling abnormal [Unknown]
